FAERS Safety Report 20221601 (Version 1)
Quarter: 2021Q4

REPORT INFORMATION
  Report Type: Spontaneous
  Country: TR (occurrence: TR)
  Receive Date: 20211223
  Receipt Date: 20211223
  Transmission Date: 20220303
  Serious: Yes (Hospitalization, Other)
  Sender: FDA-Public Use
  Company Number: TR-ALVOGEN-2021-ALVOGEN-117959

PATIENT
  Age: 24 Year
  Sex: Female
  Weight: 42 kg

DRUGS (1)
  1. LIDOCAINE [Suspect]
     Active Substance: LIDOCAINE
     Indication: Myofascial pain syndrome
     Dosage: 8 TRIGGER POINTS OF THE RIGHT TRAPEZIUS MUSCLE

REACTIONS (1)
  - Ischaemic stroke [Recovering/Resolving]
